FAERS Safety Report 9801374 (Version 1)
Quarter: 2014Q1

REPORT INFORMATION
  Report Type: Spontaneous
  Country: US (occurrence: US)
  Receive Date: 20140107
  Receipt Date: 20140107
  Transmission Date: 20141002
  Serious: No
  Sender: FDA-Public Use
  Company Number: US-GLAXOSMITHKLINE-A1051358A

PATIENT
  Age: 51 Year
  Sex: Female

DRUGS (1)
  1. BENLYSTA [Suspect]
     Indication: SYSTEMIC LUPUS ERYTHEMATOSUS
     Dosage: 120MG EVERY 28 DAYS
     Route: 042
     Dates: start: 20120501, end: 20130201

REACTIONS (5)
  - Laryngitis [Unknown]
  - Nasopharyngitis [Unknown]
  - Pyrexia [Unknown]
  - Bronchitis [Unknown]
  - Aphonia [Unknown]
